FAERS Safety Report 10330378 (Version 1)
Quarter: 2014Q3

REPORT INFORMATION
  Report Type: Report from Study
  Country: GB (occurrence: GB)
  Receive Date: 20140722
  Receipt Date: 20140722
  Transmission Date: 20150326
  Serious: Yes (Death)
  Sender: FDA-Public Use
  Company Number: GB-ROCHE-1437198

PATIENT
  Age: 61 Year
  Sex: Female

DRUGS (10)
  1. CAPECITABINE [Suspect]
     Active Substance: CAPECITABINE
     Indication: OESOPHAGEAL CARCINOMA
     Route: 048
     Dates: end: 20130218
  2. ONDANSETRON [Concomitant]
     Active Substance: ONDANSETRON
     Indication: OESOPHAGEAL CARCINOMA
     Route: 048
     Dates: end: 20130218
  3. OXALIPLATIN. [Concomitant]
     Active Substance: OXALIPLATIN
     Indication: OESOPHAGEAL CARCINOMA
     Route: 042
     Dates: end: 20130218
  4. DEXAMETHASONE. [Concomitant]
     Active Substance: DEXAMETHASONE
     Route: 048
     Dates: end: 20130218
  5. EPIRUBICIN [Concomitant]
     Active Substance: EPIRUBICIN
     Indication: OESOPHAGEAL CARCINOMA
     Route: 040
     Dates: end: 20130218
  6. GLUCOSE 5% [Concomitant]
     Active Substance: DEXTROSE
     Indication: OESOPHAGEAL CARCINOMA
     Route: 042
     Dates: end: 20130218
  7. LOPERAMIDE [Concomitant]
     Active Substance: LOPERAMIDE
     Indication: OESOPHAGEAL CARCINOMA
     Route: 048
     Dates: end: 20130218
  8. DOMPERIDONE [Concomitant]
     Active Substance: DOMPERIDONE
     Indication: OESOPHAGEAL CARCINOMA
     Route: 048
     Dates: end: 20130218
  9. DEXAMETHASONE. [Concomitant]
     Active Substance: DEXAMETHASONE
     Indication: OESOPHAGEAL CARCINOMA
     Route: 048
     Dates: end: 20130218
  10. DEXTROSE, SODIUM CHLORIDE, AND POTASSIUM CHLORIDE [Concomitant]
     Active Substance: DEXTROSE\POTASSIUM CHLORIDE\SODIUM CHLORIDE
     Indication: OESOPHAGEAL CARCINOMA
     Route: 042
     Dates: end: 20130218

REACTIONS (1)
  - Death [Fatal]
